FAERS Safety Report 24531510 (Version 1)
Quarter: 2024Q4

REPORT INFORMATION
  Report Type: Report from Study
  Country: US (occurrence: US)
  Receive Date: 20241022
  Receipt Date: 20241022
  Transmission Date: 20250115
  Serious: No
  Sender: ROCHE
  Company Number: US-ROCHE-2114630

PATIENT
  Age: 24 Year
  Sex: Female

DRUGS (8)
  1. PULMOZYME [Suspect]
     Active Substance: DORNASE ALFA
     Indication: Lung disorder
     Route: 045
  2. PULMOZYME [Suspect]
     Active Substance: DORNASE ALFA
     Indication: Bronchiectasis
     Route: 045
  3. PULMOZYME [Suspect]
     Active Substance: DORNASE ALFA
     Dosage: NEBULIZE THE CONTENTS OF 1 VIAL(S) EVERY DAY
     Route: 045
  4. PULMOZYME [Suspect]
     Active Substance: DORNASE ALFA
     Route: 045
  5. ALBUTEROL [Concomitant]
     Active Substance: ALBUTEROL
  6. AMITRIPTYLINE [Concomitant]
     Active Substance: AMITRIPTYLINE
  7. ONDANSETRON [Concomitant]
     Active Substance: ONDANSETRON
  8. TOBRAMYCIN [Concomitant]
     Active Substance: TOBRAMYCIN\TOBRAMYCIN SULFATE

REACTIONS (2)
  - Off label use [Unknown]
  - No adverse event [Unknown]
